FAERS Safety Report 10760124 (Version 1)
Quarter: 2015Q1

REPORT INFORMATION
  Report Type: Report from Study
  Country: DE (occurrence: DE)
  Receive Date: 20150204
  Receipt Date: 20150204
  Transmission Date: 20150721
  Serious: Yes (Death, Hospitalization)
  Sender: FDA-Public Use
  Company Number: DE-ROCHE-1443228

PATIENT
  Age: 77 Year
  Sex: Female
  Weight: 65 kg

DRUGS (9)
  1. XELODA [Concomitant]
     Active Substance: CAPECITABINE
     Indication: BREAST CANCER
     Dosage: FROM DAY 1 TO DAY 14
     Route: 048
     Dates: start: 20130524, end: 20130627
  2. ACC [Concomitant]
     Active Substance: ACETYLCYSTEINE
     Indication: RESPIRATORY TRACT CONGESTION
     Route: 048
     Dates: start: 20131212
  3. XELODA [Concomitant]
     Active Substance: CAPECITABINE
     Dosage: FROM DAY 1 TO DAY 14
     Route: 048
     Dates: start: 20130705, end: 20130906
  4. NOVALGIN [Concomitant]
     Active Substance: METAMIZOLE SODIUM
     Indication: PAIN
     Route: 048
     Dates: start: 20130829
  5. RANIBETA [Concomitant]
     Indication: PROPHYLAXIS AGAINST GASTROINTESTINAL ULCER
     Route: 048
     Dates: start: 20130719
  6. BEVACIZUMAB [Suspect]
     Active Substance: BEVACIZUMAB
     Indication: BREAST CANCER
     Route: 042
     Dates: start: 20130607, end: 20130607
  7. XELODA [Concomitant]
     Active Substance: CAPECITABINE
     Dosage: FROM DAY 1 TO DAY 14
     Route: 048
     Dates: start: 20130929, end: 20140603
  8. IBUPROFEN. [Concomitant]
     Active Substance: IBUPROFEN
     Indication: PAIN
     Route: 048
     Dates: start: 20130829
  9. BEVACIZUMAB [Suspect]
     Active Substance: BEVACIZUMAB
     Route: 042
     Dates: start: 20140604, end: 20140604

REACTIONS (6)
  - Malignant neoplasm progression [Fatal]
  - Brain contusion [Recovered/Resolved]
  - Skull fractured base [Recovered/Resolved with Sequelae]
  - Laceration [Recovered/Resolved]
  - Fall [Unknown]
  - Haemorrhage intracranial [Recovered/Resolved]

NARRATIVE: CASE EVENT DATE: 20140722
